FAERS Safety Report 15271307 (Version 1)
Quarter: 2018Q3

REPORT INFORMATION
  Report Type: Spontaneous
  Country: US (occurrence: US)
  Receive Date: 20180727
  Receipt Date: 20180727
  Transmission Date: 20181010
  Serious: Yes (Hospitalization)
  Sender: FDA-Public Use
  Company Number: None

PATIENT
  Age: 65 Year
  Sex: Male
  Weight: 85.3 kg

DRUGS (13)
  1. PANTOPRAZOLE [Concomitant]
     Active Substance: PANTOPRAZOLE
  2. LEVETIRACETAM. [Concomitant]
     Active Substance: LEVETIRACETAM
  3. RENVELA [Concomitant]
     Active Substance: SEVELAMER CARBONATE
  4. HUMALOG KWIKPEN [Concomitant]
     Active Substance: INSULIN LISPRO
  5. MIDODRINE [Concomitant]
     Active Substance: MIDODRINE
  6. ZIPRASIDONE. [Concomitant]
     Active Substance: ZIPRASIDONE
  7. ASPIRIN. [Concomitant]
     Active Substance: ASPIRIN
  8. FLUOXETINE [Concomitant]
     Active Substance: FLUOXETINE HYDROCHLORIDE
  9. DUONEB [Concomitant]
     Active Substance: ALBUTEROL SULFATE\IPRATROPIUM BROMIDE
  10. METOPROLOL TARTRATE. [Concomitant]
     Active Substance: METOPROLOL TARTRATE
  11. TRANEXAMIC ACID. [Suspect]
     Active Substance: TRANEXAMIC ACID
     Indication: DIALYSIS
     Route: 042
     Dates: start: 20180413, end: 20180413
  12. ATORVASTATIN [Concomitant]
     Active Substance: ATORVASTATIN
  13. LANTUS [Concomitant]
     Active Substance: INSULIN GLARGINE

REACTIONS (2)
  - Generalised tonic-clonic seizure [None]
  - Cyanosis [None]

NARRATIVE: CASE EVENT DATE: 20180413
